FAERS Safety Report 8879934 (Version 4)
Quarter: 2014Q3

REPORT INFORMATION
  Report Type: Spontaneous
  Country: IL (occurrence: IL)
  Receive Date: 20121031
  Receipt Date: 20140917
  Transmission Date: 20150326
  Serious: Yes (Death, Hospitalization, Other)
  Sender: FDA-Public Use
  Company Number: IL-B.I. PHARMACEUTICALS,INC./RIDGEFIELD-2012-AP-00958RI

PATIENT
  Age: 91 Year
  Sex: Female
  Weight: 62 kg

DRUGS (2)
  1. PRADAXA [Suspect]
     Active Substance: DABIGATRAN ETEXILATE MESYLATE
     Indication: SICK SINUS SYNDROME
  2. PRADAXA [Suspect]
     Active Substance: DABIGATRAN ETEXILATE MESYLATE
     Indication: ATRIAL FIBRILLATION
     Route: 048
     Dates: start: 201206

REACTIONS (14)
  - Gastrointestinal haemorrhage [Fatal]
  - Asthenia [Unknown]
  - Lung infiltration [Unknown]
  - Oedema [Unknown]
  - Faecalith [Unknown]
  - Off label use [Unknown]
  - Shock haemorrhagic [Fatal]
  - Staphylococcal bacteraemia [Fatal]
  - Septic shock [Fatal]
  - Mental status changes [Unknown]
  - Face oedema [Unknown]
  - Syncope [Unknown]
  - Jaundice [Unknown]
  - Disorientation [Unknown]

NARRATIVE: CASE EVENT DATE: 201209
